FAERS Safety Report 19675171 (Version 1)
Quarter: 2021Q3

REPORT INFORMATION
  Report Type: Spontaneous
  Country: US (occurrence: US)
  Receive Date: 20210809
  Receipt Date: 20210809
  Transmission Date: 20211014
  Serious: No
  Sender: FDA-Public Use
  Company Number: US-ASTRAZENECA-2021A637872

PATIENT
  Sex: Male
  Weight: 87.1 kg

DRUGS (15)
  1. ELIQUIS [Concomitant]
     Active Substance: APIXABAN
  2. VALSARTAN. [Concomitant]
     Active Substance: VALSARTAN
  3. LOSARTAN POTASSIUM. [Concomitant]
     Active Substance: LOSARTAN POTASSIUM
  4. VITAMIN D [Concomitant]
     Active Substance: VITAMIN D NOS
  5. ATORVASTAIN [Concomitant]
     Active Substance: ATORVASTATIN
  6. FINASTERIDE. [Concomitant]
     Active Substance: FINASTERIDE
  7. CALQUENCE [Suspect]
     Active Substance: ACALABRUTINIB
     Indication: CHRONIC LYMPHOCYTIC LEUKAEMIA
     Route: 048
  8. ACYCLOVIR. [Concomitant]
     Active Substance: ACYCLOVIR
  9. AMIODARONE [Concomitant]
     Active Substance: AMIODARONE
  10. METOPROLOL. [Concomitant]
     Active Substance: METOPROLOL
  11. TAMSULOSIN [Concomitant]
     Active Substance: TAMSULOSIN
  12. TYLENOL [Concomitant]
     Active Substance: ACETAMINOPHEN
  13. MULTI COMPLETE [Concomitant]
  14. LASIX [Concomitant]
     Active Substance: FUROSEMIDE
  15. ASPIT?81 [Concomitant]

REACTIONS (1)
  - Heart rate increased [Unknown]
